FAERS Safety Report 6370757-1 (Version None)
Quarter: 2009Q3

REPORT INFORMATION
  Report Type: 
  Country: None (occurrence: None)
  Receive Date: 20090923
  Receipt Date: 20071120
  Transmission Date: 20100115
  Serious: Yes (Other)
  Sender: FDA-Public Use
  Company Number: US-ASTRAZENECA-2006UW27465

PATIENT
  Age: 523 Month
  Sex: Male
  Weight: 113 kg

DRUGS (19)
  1. SEROQUEL [Suspect]
     Indication: DEPRESSION
     Dosage: 50 MG TO 800 MG
     Route: 048
     Dates: start: 20050504
  2. SEROQUEL [Suspect]
     Dosage: 1000 MG - 800 MG
     Route: 048
     Dates: start: 20051001, end: 20061101
  3. ABILIFY [Concomitant]
     Dates: start: 20060701
  4. RISPERDAL [Concomitant]
  5. CYMBALTA [Concomitant]
     Dates: start: 20050101
  6. KLONOPIN [Concomitant]
  7. NORVASC [Concomitant]
  8. REMERON [Concomitant]
  9. PROSOM [Concomitant]
  10. ATIVAN [Concomitant]
  11. GLUCOPHAGE [Concomitant]
  12. ZOCOR [Concomitant]
  13. TRICOR [Concomitant]
  14. WELLBUTRIN [Concomitant]
  15. VYTORIN [Concomitant]
  16. DEPAKOTE [Concomitant]
  17. AMBIEN [Concomitant]
  18. TRAZODONE HYDROCHLORIDE [Concomitant]
  19. MEVACOR [Concomitant]

REACTIONS (4)
  - DIABETES MELLITUS [None]
  - DIABETES MELLITUS INADEQUATE CONTROL [None]
  - HYPERGLYCAEMIA [None]
  - PANCREATITIS [None]
